FAERS Safety Report 9257965 (Version 1)
Quarter: 2013Q2

REPORT INFORMATION
  Report Type: Report from Study
  Country: JP (occurrence: JP)
  Receive Date: 20130426
  Receipt Date: 20130426
  Transmission Date: 20140414
  Serious: Yes (Other)
  Sender: FDA-Public Use
  Company Number: JP-ROCHE-1172424

PATIENT
  Sex: 0

DRUGS (4)
  1. BEVACIZUMAB [Suspect]
     Indication: NON-SMALL CELL LUNG CANCER
     Dosage: MAINTENANCE THERAPY
     Route: 042
  2. CARBOPLATIN [Suspect]
     Indication: NON-SMALL CELL LUNG CANCER
     Dosage: DOSE : AUC 5 MG/ML PER MINUTE
     Route: 065
  3. S-1 (5-FU DERIVATIVE) (GIMERACIL, OTERACIL POTASSIUM) [Suspect]
     Indication: NON-SMALL CELL LUNG CANCER
     Route: 048
  4. S-1 (5-FU DERIVATIVE) (GIMERACIL, OTERACIL POTASSIUM) [Suspect]
     Dosage: MAINTENANCE THERAPY
     Route: 048

REACTIONS (11)
  - Intestinal perforation [Unknown]
  - Leukopenia [Unknown]
  - Neutropenia [Unknown]
  - Anaemia [Unknown]
  - Thrombocytopenia [Unknown]
  - Hypertension [Unknown]
  - Proteinuria [Unknown]
  - Mucosal inflammation [Unknown]
  - Diarrhoea [Unknown]
  - Fatigue [Unknown]
  - Decreased appetite [Unknown]
